FAERS Safety Report 6036427-4 (Version None)
Quarter: 2009Q1

REPORT INFORMATION
  Report Type: 
  Country: None (occurrence: None)
  Receive Date: 20090112
  Receipt Date: 20081229
  Transmission Date: 20090719
  Serious: Yes (Hospitalization)
  Sender: FDA-Public Use
  Company Number: KV200801471

PATIENT
  Age: 88 Year
  Sex: Female
  Weight: 59 kg

DRUGS (4)
  1. ISOSORBIDE MONONITRATE [Suspect]
     Indication: CARDIAC DISORDER
     Dosage: 60 MG, QD, ORAL
     Route: 048
  2. POTASSIUM (POTASSIUM) [Concomitant]
  3. FUROSEMIDE /00032602/ (FUROSEMIDE SODIUM) [Concomitant]
  4. SIMVASTATIN [Concomitant]

REACTIONS (4)
  - DIZZINESS [None]
  - FALL [None]
  - FRACTURE [None]
  - PRODUCT QUALITY ISSUE [None]
